FAERS Safety Report 7075440-5 (Version None)
Quarter: 2010Q4

REPORT INFORMATION
  Report Type: 
  Country: None (occurrence: None)
  Receive Date: 20101030
  Receipt Date: 20100910
  Transmission Date: 20110411
  Serious: No
  Sender: FDA-Public Use
  Company Number: US-WYE-H17502610

PATIENT
  Sex: Female

DRUGS (2)
  1. ADVIL PM [Suspect]
     Indication: INSOMNIA
     Dosage: 1-2 CAPLETS EVERY NIGHT
     Route: 048
     Dates: start: 20100818, end: 20100828
  2. ADVIL PM [Suspect]
     Indication: PAIN

REACTIONS (5)
  - CONSTIPATION [None]
  - FATIGUE [None]
  - INAPPROPRIATE SCHEDULE OF DRUG ADMINISTRATION [None]
  - MUSCULAR WEAKNESS [None]
  - NAUSEA [None]
